FAERS Safety Report 7620783-7 (Version None)
Quarter: 2011Q3

REPORT INFORMATION
  Report Type: 
  Country: None (occurrence: None)
  Receive Date: 20110719
  Receipt Date: 20110708
  Transmission Date: 20111222
  Serious: Yes (Other)
  Sender: FDA-Public Use
  Company Number: PHHY2011GB37396

PATIENT
  Age: 55 Year
  Sex: Female
  Weight: 70 kg

DRUGS (6)
  1. AZULFIDINE [Concomitant]
     Dosage: 1 G, BID
     Dates: start: 20101101
  2. WARFARIN SODIUM [Suspect]
     Indication: ATRIAL FIBRILLATION
     Dosage: UNK UKN, UNK
     Route: 048
     Dates: start: 20100101
  3. ENBREL [Interacting]
     Indication: RHEUMATOID ARTHRITIS
     Dosage: 50 MG, QW
     Route: 058
     Dates: start: 20110201
  4. ATENOLOL [Concomitant]
     Dosage: 50 MG, UNK
     Route: 048
  5. DILTIAZEM [Concomitant]
     Dosage: 180 MG, UNK
     Route: 048
  6. HYDROXYCHLOROQUINE SULFATE [Concomitant]
     Indication: CARDIOVERSION
     Dosage: 200 MG, BID
     Dates: start: 20110201

REACTIONS (6)
  - JOINT SWELLING [None]
  - INTERNATIONAL NORMALISED RATIO INCREASED [None]
  - ARTHRALGIA [None]
  - DRUG INTERACTION [None]
  - RHEUMATOID ARTHRITIS [None]
  - ASTHENIA [None]
